FAERS Safety Report 5963734-3 (Version None)
Quarter: 2008Q4

REPORT INFORMATION
  Report Type: 
  Country: None (occurrence: None)
  Receive Date: 20081121
  Receipt Date: 20081121
  Transmission Date: 20090506
  Serious: No
  Sender: FDA-Public Use
  Company Number: None

PATIENT
  Age: 58 Year
  Sex: Female
  Weight: 58.0604 kg

DRUGS (3)
  1. ACTONEL [Suspect]
     Indication: OSTEOPOROSIS
     Dosage: 35MG  WEEKLY PO
     Route: 048
     Dates: start: 20051001, end: 20061015
  2. ZYRTEC [Concomitant]
  3. TRAMADOL HCL [Concomitant]

REACTIONS (4)
  - ARRHYTHMIA [None]
  - SYNCOPE [None]
  - TACHYCARDIA [None]
  - VENTRICULAR EXTRASYSTOLES [None]
